FAERS Safety Report 19384281 (Version 18)
Quarter: 2023Q1

REPORT INFORMATION
  Report Type: Spontaneous
  Country: GB (occurrence: GB)
  Receive Date: 20210608
  Receipt Date: 20230221
  Transmission Date: 20230417
  Serious: Yes (Hospitalization, Other)
  Sender: FDA-Public Use
  Company Number: GB-EMA-DD-20181204-TANEJA_C-110352

PATIENT
  Age: 7 Year
  Sex: Male

DRUGS (38)
  1. DAPTOMYCIN [Suspect]
     Active Substance: DAPTOMYCIN
     Indication: Bacteraemia
     Route: 042
  2. DAPTOMYCIN [Suspect]
     Active Substance: DAPTOMYCIN
     Indication: Device related infection
  3. DAPTOMYCIN [Suspect]
     Active Substance: DAPTOMYCIN
     Route: 042
  4. DAPTOMYCIN [Suspect]
     Active Substance: DAPTOMYCIN
     Dosage: UNK
     Route: 042
  5. VANCOMYCIN [Suspect]
     Active Substance: VANCOMYCIN
     Indication: Device related infection
     Dosage: UNK, DRUG TAKEN BEYOND EXPIRY DATE, MEDICATION ERROR, MISUSE, OFF LABEL USEPOWDER FOR INJECTION
     Route: 065
  6. VANCOMYCIN [Suspect]
     Active Substance: VANCOMYCIN
     Indication: Bacteraemia
     Route: 065
  7. VANCOMYCIN [Suspect]
     Active Substance: VANCOMYCIN
     Dosage: UNK, DRUG TAKEN BEYOND EXPIRY DATE, MEDICATION ERROR, MISUSE, OFF LABEL USEPOWDER FOR INJECTION
     Route: 042
  8. ALFUZOSIN HYDROCHLORIDE [Suspect]
     Active Substance: ALFUZOSIN HYDROCHLORIDE
     Indication: Product used for unknown indication
     Route: 065
  9. ALFUZOSIN HYDROCHLORIDE [Suspect]
     Active Substance: ALFUZOSIN HYDROCHLORIDE
  10. ALFUZOSIN HYDROCHLORIDE [Suspect]
     Active Substance: ALFUZOSIN HYDROCHLORIDE
  11. ALFUZOSIN HYDROCHLORIDE [Suspect]
     Active Substance: ALFUZOSIN HYDROCHLORIDE
     Dosage: ;ADDITIONAL INFO: DRUG TAKEN BEYOND EXPIRY DATE, MEDICATION ERROR, MISUSE
  12. ALFUZOSIN HYDROCHLORIDE [Suspect]
     Active Substance: ALFUZOSIN HYDROCHLORIDE
  13. ALFUZOSIN HYDROCHLORIDE [Suspect]
     Active Substance: ALFUZOSIN HYDROCHLORIDE
  14. ALFUZOSIN HYDROCHLORIDE [Suspect]
     Active Substance: ALFUZOSIN HYDROCHLORIDE
     Dosage: ;ADDITIONAL INFO: DRUG TAKEN BEYOND EXPIRY DATE, MEDICATION ERROR, MISUSE
  15. ALFUZOSIN HYDROCHLORIDE [Suspect]
     Active Substance: ALFUZOSIN HYDROCHLORIDE
  16. ALFUZOSIN HYDROCHLORIDE [Suspect]
     Active Substance: ALFUZOSIN HYDROCHLORIDE
     Dosage: 10 MG, QD,ADDITIONAL INFO: DRUG TAKEN BEYOND EXPIRY DATE, MEDICATION ERROR, MISUSE, OFF LABEL USE
  17. BISOPROLOL FUMARATE [Suspect]
     Active Substance: BISOPROLOL FUMARATE
     Indication: Product used for unknown indication
  18. BISOPROLOL FUMARATE [Suspect]
     Active Substance: BISOPROLOL FUMARATE
     Dosage: DRUG TAKEN BEYOND EXPIRY DATE, MEDICATION ERROR, MISUSE, OFF LABEL U
  19. DUTASTERIDE [Suspect]
     Active Substance: DUTASTERIDE
     Indication: Product used for unknown indication
  20. DUTASTERIDE [Suspect]
     Active Substance: DUTASTERIDE
  21. DUTASTERIDE [Suspect]
     Active Substance: DUTASTERIDE
     Dosage: DRUG TAKEN BEYOND EXPIRY DATE, MEDICATION ERROR, MISUSE, OFF LABEL
  22. DUTASTERIDE [Suspect]
     Active Substance: DUTASTERIDE
     Dosage: DRUG TAKEN BEYOND EXPIRY DATE, MEDICATION ERROR, MISUSE, OFF LABEL
  23. LANSOPRAZOLE [Suspect]
     Active Substance: LANSOPRAZOLE
     Indication: Gastrooesophageal reflux disease
  24. LANSOPRAZOLE [Suspect]
     Active Substance: LANSOPRAZOLE
  25. LANSOPRAZOLE [Suspect]
     Active Substance: LANSOPRAZOLE
     Dosage: ADDITIONAL INFO: DRUG TAKEN BEYOND EXPIRY DATE, MEDICATION ERROR, MISUSEUNK
  26. LANSOPRAZOLE [Suspect]
     Active Substance: LANSOPRAZOLE
     Dosage: ADDITIONAL INFO: DRUG TAKEN BEYOND EXPIRY DATE, MEDICATION ERROR, M
  27. LANSOPRAZOLE [Suspect]
     Active Substance: LANSOPRAZOLE
  28. LANSOPRAZOLE [Suspect]
     Active Substance: LANSOPRAZOLE
  29. LANSOPRAZOLE [Suspect]
     Active Substance: LANSOPRAZOLE
     Dosage: ADDITIONAL INFO: DRUG TAKEN BEYOND EXPIRY DATE, MEDICATION ERROR, MISUSEUNK
  30. TRAMADOL HYDROCHLORIDE [Suspect]
     Active Substance: TRAMADOL HYDROCHLORIDE
     Indication: Product used for unknown indication
     Dosage: MEDICATION ERROR
  31. TRAMADOL HYDROCHLORIDE [Suspect]
     Active Substance: TRAMADOL HYDROCHLORIDE
     Dosage: DRUG TAKEN BEYOND EXPIRY DATE, MEDICATION ERROR, MISUSE
  32. TRAMADOL HYDROCHLORIDE [Suspect]
     Active Substance: TRAMADOL HYDROCHLORIDE
     Dosage: MEDICATION ERROR
  33. TRAMADOL HYDROCHLORIDE [Suspect]
     Active Substance: TRAMADOL HYDROCHLORIDE
     Dosage: UNK
  34. TRAMADOL HYDROCHLORIDE [Suspect]
     Active Substance: TRAMADOL HYDROCHLORIDE
  35. TRAMADOL HYDROCHLORIDE [Suspect]
     Active Substance: TRAMADOL HYDROCHLORIDE
     Dosage: UNK, ADDITIONAL INFO MEDICATION ERROR
  36. TRAMADOL HYDROCHLORIDE [Suspect]
     Active Substance: TRAMADOL HYDROCHLORIDE
  37. TRAMADOL HYDROCHLORIDE [Suspect]
     Active Substance: TRAMADOL HYDROCHLORIDE
  38. LINEZOLID [Concomitant]
     Active Substance: LINEZOLID
     Indication: Product used for unknown indication

REACTIONS (18)
  - Lower respiratory tract infection [Unknown]
  - Antimicrobial susceptibility test resistant [Unknown]
  - Malaise [Unknown]
  - Malaise [Unknown]
  - Minimum inhibitory concentration [Unknown]
  - Therapy non-responder [Unknown]
  - Drug ineffective for unapproved indication [Unknown]
  - Off label use [Unknown]
  - Product administration error [Unknown]
  - Product storage error [Unknown]
  - Wrong product administered [Unknown]
  - Wrong patient received product [Unknown]
  - Product dispensing error [Unknown]
  - Therapeutic response delayed [Unknown]
  - Drug dispensed to wrong patient [Unknown]
  - Expired product administered [Unknown]
  - Wrong patient received product [Unknown]
  - Intentional product misuse [Unknown]
